FAERS Safety Report 7388082-9 (Version None)
Quarter: 2011Q1

REPORT INFORMATION
  Report Type: 
  Country: None (occurrence: None)
  Receive Date: 20110324
  Receipt Date: 20110314
  Transmission Date: 20110831
  Serious: Yes (Death)
  Sender: FDA-Public Use
  Company Number: 2011MA002394

PATIENT
  Age: 43 Year
  Sex: Male
  Weight: 30 kg

DRUGS (3)
  1. HYDROCORTISONE 2.5% CREAM [Suspect]
     Dosage: IV
     Route: 042
  2. METRONIDAZOLE [Suspect]
     Dosage: IV
     Route: 042
  3. FEVERALL [Suspect]
     Dosage: 4 GM, QD, PO
     Route: 048

REACTIONS (6)
  - MULTI-ORGAN FAILURE [None]
  - DRUG LEVEL INCREASED [None]
  - TACHYPNOEA [None]
  - CONFUSIONAL STATE [None]
  - LACTIC ACIDOSIS [None]
  - ACUTE HEPATIC FAILURE [None]
